FAERS Safety Report 22051049 (Version 4)
Quarter: 2023Q1

REPORT INFORMATION
  Report Type: Spontaneous
  Country: US (occurrence: US)
  Receive Date: 20230301
  Receipt Date: 20230321
  Transmission Date: 20230418
  Serious: Yes (Hospitalization, Other)
  Sender: FDA-Public Use
  Company Number: US-PFIZER INC-PV202300038387

PATIENT
  Age: 71 Year
  Sex: Male
  Weight: 81.633 kg

DRUGS (2)
  1. BRAFTOVI [Suspect]
     Active Substance: ENCORAFENIB
     Indication: Metastatic malignant melanoma
     Dosage: 300 MG, 1X/DAY
     Route: 048
  2. MEKTOVI [Suspect]
     Active Substance: BINIMETINIB
     Indication: Metastatic malignant melanoma
     Dosage: 30 MG

REACTIONS (9)
  - Gait disturbance [Unknown]
  - Parkinson^s disease [Unknown]
  - Neoplasm progression [Unknown]
  - Aphasia [Unknown]
  - Weight decreased [Unknown]
  - Condition aggravated [Unknown]
  - Food poisoning [Unknown]
  - Vomiting [Unknown]
  - Mobility decreased [Unknown]
